FAERS Safety Report 6978050-0 (Version None)
Quarter: 2010Q3

REPORT INFORMATION
  Report Type: 
  Country: None (occurrence: None)
  Receive Date: 20100913
  Receipt Date: 20100830
  Transmission Date: 20110219
  Serious: Yes (Hospitalization, Other)
  Sender: FDA-Public Use
  Company Number: US-ELI_LILLY_AND_COMPANY-US200911002945

PATIENT
  Sex: Female

DRUGS (2)
  1. FORTEO [Suspect]
     Dates: start: 20090903, end: 20091101
  2. MORPHINE [Concomitant]

REACTIONS (4)
  - ADVERSE DRUG REACTION [None]
  - LOCALISED INFECTION [None]
  - MEDICAL DEVICE COMPLICATION [None]
  - SEPSIS [None]
